FAERS Safety Report 5941195-8 (Version None)
Quarter: 2008Q4

REPORT INFORMATION
  Report Type: 
  Country: None (occurrence: None)
  Receive Date: 20081104
  Receipt Date: 20081024
  Transmission Date: 20090506
  Serious: Yes (Death)
  Sender: FDA-Public Use
  Company Number: JP-PFIZER INC-2008055549

PATIENT
  Age: 82 Year
  Sex: Female

DRUGS (6)
  1. CELECOX [Suspect]
     Indication: RHEUMATOID ARTHRITIS
     Route: 048
     Dates: start: 20071212, end: 20080501
  2. DICLOFENAC SODIUM [Concomitant]
     Dosage: DAILY DOSE:50MG
     Route: 054
     Dates: start: 20071212, end: 20080510
  3. IMIDAPRIL HYDROCHLORIDE [Concomitant]
     Indication: HYPERTENSION
     Route: 048
     Dates: start: 20070517
  4. LANSOPRAZOLE [Concomitant]
     Indication: REFLUX OESOPHAGITIS
     Dates: start: 20071226
  5. PREDNISOLONE [Concomitant]
     Indication: RHEUMATOID ARTHRITIS
     Route: 048
     Dates: start: 20070715
  6. GRAMALIL [Concomitant]
     Indication: AGITATION
     Route: 048
     Dates: start: 20070226

REACTIONS (1)
  - PNEUMONIA [None]
